FAERS Safety Report 24692373 (Version 1)
Quarter: 2024Q4

REPORT INFORMATION
  Report Type: Other
  Country: CN (occurrence: CN)
  Receive Date: 20241203
  Receipt Date: 20241203
  Transmission Date: 20250115
  Serious: Yes (Death)
  Sender: B BRAUN
  Company Number: CN-B.Braun Medical Inc.-2166399

PATIENT
  Age: 39 Year
  Sex: Female
  Weight: 62 kg

DRUGS (1)
  1. DEXTROSE [Suspect]
     Active Substance: DEXTROSE MONOHYDRATE

REACTIONS (2)
  - Water intoxication [Fatal]
  - Off label use [Fatal]
